FAERS Safety Report 8592684-1 (Version None)
Quarter: 2012Q3

REPORT INFORMATION
  Report Type: 
  Country: None (occurrence: None)
  Receive Date: 20120814
  Receipt Date: 20120801
  Transmission Date: 20120928
  Serious: Yes (Disabling)
  Sender: FDA-Public Use
  Company Number: GB-ELI_LILLY_AND_COMPANY-GB201208001432

PATIENT
  Sex: Female

DRUGS (1)
  1. BYETTA [Suspect]
     Indication: TYPE 2 DIABETES MELLITUS
     Dosage: UNK, UNKNOWN

REACTIONS (7)
  - HYPOGLYCAEMIA UNAWARENESS [None]
  - BLOOD GLUCOSE DECREASED [None]
  - ABASIA [None]
  - DEPRESSION [None]
  - OBESITY [None]
  - HEADACHE [None]
  - FIBROMYALGIA [None]
